FAERS Safety Report 24844477 (Version 1)
Quarter: 2025Q1

REPORT INFORMATION
  Report Type: Spontaneous
  Country: US (occurrence: US)
  Receive Date: 20250115
  Receipt Date: 20250115
  Transmission Date: 20250409
  Serious: Yes (Other)
  Sender: AUROBINDO
  Company Number: US-AUROBINDO-AUR-APL-2025-001609

PATIENT
  Age: 59 Year
  Sex: Female

DRUGS (6)
  1. METOPROLOL [Suspect]
     Active Substance: METOPROLOL
     Indication: Thyrotoxic crisis
     Route: 065
  2. METOPROLOL [Suspect]
     Active Substance: METOPROLOL
     Indication: Pulmonary hypertension
  3. METHIMAZOLE [Suspect]
     Active Substance: METHIMAZOLE
     Indication: Thyrotoxic crisis
     Route: 065
  4. POTASSIUM IODIDE [Suspect]
     Active Substance: POTASSIUM IODIDE
     Indication: Thyrotoxic crisis
     Route: 065
  5. FUROSEMIDE [Concomitant]
     Active Substance: FUROSEMIDE
     Indication: Pulmonary hypertension
     Route: 065
  6. PROPYLTHIOURACIL [Concomitant]
     Active Substance: PROPYLTHIOURACIL
     Indication: Thyrotoxic crisis
     Route: 065

REACTIONS (1)
  - Drug ineffective [Unknown]
